APPROVED DRUG PRODUCT: PONSTEL
Active Ingredient: MEFENAMIC ACID
Strength: 250MG
Dosage Form/Route: CAPSULE;ORAL
Application: N015034 | Product #003 | TE Code: AB
Applicant: AVION PHARMACEUTICALS LLC
Approved: Approved Prior to Jan 1, 1982 | RLD: Yes | RS: Yes | Type: RX